FAERS Safety Report 9271590 (Version 1)
Quarter: 2013Q2

REPORT INFORMATION
  Report Type: Report from Study
  Country: US (occurrence: US)
  Receive Date: 20130506
  Receipt Date: 20130506
  Transmission Date: 20140414
  Serious: Yes (Other)
  Sender: FDA-Public Use
  Company Number: US-ROCHE-1220499

PATIENT
  Sex: 0

DRUGS (2)
  1. BEVACIZUMAB [Suspect]
     Indication: PRODUCT USED FOR UNKNOWN INDICATION
     Route: 050
  2. RANIBIZUMAB [Suspect]
     Indication: PRODUCT USED FOR UNKNOWN INDICATION
     Route: 050

REACTIONS (8)
  - Endophthalmitis [Unknown]
  - Retinal detachment [Unknown]
  - Retinal haemorrhage [Unknown]
  - Suspected transmission of an infectious agent via product [Unknown]
  - Corneal oedema [Unknown]
  - Conjunctival hyperaemia [Unknown]
  - Inflammation [Unknown]
  - Hypopyon [Unknown]
